FAERS Safety Report 5065071-0 (Version None)
Quarter: 2006Q3

REPORT INFORMATION
  Report Type: 
  Country: None (occurrence: None)
  Receive Date: 20060728
  Receipt Date: 20060721
  Transmission Date: 20061208
  Serious: Yes (Death, Hospitalization)
  Sender: FDA-Public Use
  Company Number: FR-MERCK-0607FRA00055

PATIENT
  Age: 2 Day
  Sex: Female
  Weight: 1 kg

DRUGS (4)
  1. PRIMAXIN [Suspect]
     Indication: AMNIOTIC CAVITY INFECTION
     Route: 042
     Dates: start: 20060322, end: 20060324
  2. GENTAMICIN [Concomitant]
     Indication: AMNIOTIC CAVITY INFECTION
     Route: 042
     Dates: start: 20060322, end: 20060323
  3. AMOXICILLIN [Concomitant]
     Indication: AMNIOTIC CAVITY INFECTION
     Route: 042
     Dates: start: 20060322, end: 20060324
  4. IBUPROFEN [Concomitant]
     Indication: PATENT DUCTUS ARTERIOSUS
     Route: 042
     Dates: start: 20060323, end: 20060324

REACTIONS (3)
  - MULTI-ORGAN FAILURE [None]
  - RENAL FAILURE ACUTE [None]
  - SEPSIS [None]
